FAERS Safety Report 17244885 (Version 3)
Quarter: 2020Q2

REPORT INFORMATION
  Report Type: Report from Study
  Country: None (occurrence: US)
  Receive Date: 20200108
  Receipt Date: 20200508
  Transmission Date: 20200713
  Serious: Yes (Other)
  Sender: FDA-Public Use
  Company Number: US-ABBVIE-19K-163-2990680-00

PATIENT
  Age: 64 Year
  Sex: Female

DRUGS (2)
  1. HUMIRA [Suspect]
     Active Substance: ADALIMUMAB
     Route: 058
     Dates: end: 20200505
  2. HUMIRA [Suspect]
     Active Substance: ADALIMUMAB
     Indication: RHEUMATOID ARTHRITIS
     Route: 058
     Dates: start: 20191026, end: 2019

REACTIONS (35)
  - Intra-abdominal haemorrhage [Recovered/Resolved]
  - Chills [Unknown]
  - Loss of personal independence in daily activities [Unknown]
  - Pruritus [Recovered/Resolved]
  - Back pain [Unknown]
  - Paraesthesia [Recovering/Resolving]
  - Back pain [Unknown]
  - Skin abrasion [Unknown]
  - Headache [Unknown]
  - Peripheral swelling [Unknown]
  - Joint range of motion decreased [Recovering/Resolving]
  - Joint stiffness [Unknown]
  - Impaired self-care [Unknown]
  - Joint swelling [Recovering/Resolving]
  - Gait disturbance [Unknown]
  - Musculoskeletal stiffness [Recovered/Resolved]
  - Drug ineffective [Unknown]
  - Insomnia [Unknown]
  - Hypoaesthesia [Recovering/Resolving]
  - Musculoskeletal stiffness [Unknown]
  - Neck pain [Unknown]
  - Meniere^s disease [Unknown]
  - Rhinorrhoea [Recovered/Resolved]
  - Swelling [Unknown]
  - Musculoskeletal pain [Unknown]
  - Rash [Recovered/Resolved]
  - Pain in extremity [Unknown]
  - Musculoskeletal disorder [Unknown]
  - Fatigue [Recovering/Resolving]
  - Sneezing [Recovered/Resolved]
  - Weight decreased [Recovering/Resolving]
  - Feeling cold [Recovered/Resolved]
  - Swelling [Unknown]
  - Peripheral swelling [Recovered/Resolved]
  - Arthralgia [Unknown]

NARRATIVE: CASE EVENT DATE: 2019
